FAERS Safety Report 6827696-9 (Version None)
Quarter: 2010Q3

REPORT INFORMATION
  Report Type: 
  Country: None (occurrence: None)
  Receive Date: 20100709
  Receipt Date: 20070123
  Transmission Date: 20110219
  Serious: No
  Sender: FDA-Public Use
  Company Number: US-PFIZER INC-2007006444

PATIENT
  Sex: Female

DRUGS (6)
  1. CHANTIX [Suspect]
     Dates: start: 20070101
  2. ZOLOFT [Suspect]
     Indication: DEPRESSION
  3. ALPRAZOLAM [Suspect]
     Indication: PANIC DISORDER
  4. DYAZIDE [Concomitant]
  5. WELLBUTRIN [Concomitant]
  6. AMBIEN [Concomitant]

REACTIONS (6)
  - ANXIETY [None]
  - DEPRESSION [None]
  - HEADACHE [None]
  - INCREASED APPETITE [None]
  - NERVOUSNESS [None]
  - WEIGHT INCREASED [None]
